FAERS Safety Report 10161811 (Version 1)
Quarter: 2014Q2

REPORT INFORMATION
  Report Type: Spontaneous
  Country: GB (occurrence: None)
  Receive Date: 20140507
  Receipt Date: 20140507
  Transmission Date: 20141212
  Serious: Yes (Other)
  Sender: FDA-Public Use
  Company Number: AUR-APL-2014-05263

PATIENT
  Age: 25 Year
  Sex: Female
  Weight: 64.41 kg

DRUGS (2)
  1. AMOXICILLIN (AMOXICILLIN) [Suspect]
     Indication: INFECTION
     Route: 048
  2. PENICILLIN [Suspect]
     Indication: INFECTION
     Route: 048

REACTIONS (3)
  - Drug hypersensitivity [None]
  - Malaise [None]
  - Heart rate increased [None]
